FAERS Safety Report 6362330-6 (Version None)
Quarter: 2009Q3

REPORT INFORMATION
  Report Type: 
  Country: None (occurrence: None)
  Receive Date: 20090918
  Receipt Date: 20090812
  Transmission Date: 20100115
  Serious: No
  Sender: FDA-Public Use
  Company Number: US-ABBOTT-09P-163-0585782-00

PATIENT
  Sex: Female
  Weight: 108.96 kg

DRUGS (7)
  1. HUMIRA [Suspect]
     Indication: RHEUMATOID ARTHRITIS
     Dates: start: 20080101, end: 20090101
  2. HUMIRA [Suspect]
     Dates: start: 20090101
  3. CYMBALTA [Concomitant]
     Indication: DEPRESSION
  4. LABETALOL HCL [Concomitant]
     Indication: HYPERTENSION
  5. LOTENSIN [Concomitant]
     Indication: HYPERTENSION
     Dosage: 20/12.5 MG
  6. PREDNISONE [Concomitant]
     Indication: RHEUMATOID ARTHRITIS
  7. DYNACIRC [Concomitant]
     Indication: DRUG USE FOR UNKNOWN INDICATION

REACTIONS (4)
  - DRUG EFFECT DELAYED [None]
  - HEADACHE [None]
  - INJECTION SITE PAIN [None]
  - PAIN [None]
